FAERS Safety Report 22005762 (Version 1)
Quarter: 2023Q1

REPORT INFORMATION
  Report Type: Spontaneous
  Country: ES (occurrence: ES)
  Receive Date: 20230217
  Receipt Date: 20230217
  Transmission Date: 20230418
  Serious: Yes (Other)
  Sender: FDA-Public Use
  Company Number: ES-Atnahs Limited-ATNAHS20230200333

PATIENT
  Age: 32 Year
  Sex: Female

DRUGS (2)
  1. CYTARABINE [Suspect]
     Active Substance: CYTARABINE
  2. CLADRIBINE [Suspect]
     Active Substance: CLADRIBINE
     Indication: Langerhans^ cell histiocytosis
     Dosage: 0.14 MG/M2
     Route: 058

REACTIONS (5)
  - Neuropathy peripheral [Unknown]
  - Blindness [Unknown]
  - Amenorrhoea [Unknown]
  - Bronchitis [Unknown]
  - Headache [Unknown]
